FAERS Safety Report 24827649 (Version 1)
Quarter: 2025Q1

REPORT INFORMATION
  Report Type: Report from Study
  Country: US (occurrence: US)
  Receive Date: 20250109
  Receipt Date: 20250109
  Transmission Date: 20250409
  Serious: Yes (Death, Hospitalization, Other)
  Sender: JAZZ
  Company Number: US-JAZZ PHARMACEUTICALS-2024-US-012883

PATIENT
  Age: 48 Year
  Sex: Male
  Weight: 103.86 kg

DRUGS (2)
  1. LURBINECTEDIN [Suspect]
     Active Substance: LURBINECTEDIN
     Indication: Small cell lung cancer
     Dates: start: 20231226, end: 20240416
  2. XGEVA [Concomitant]
     Active Substance: DENOSUMAB
     Indication: Product used for unknown indication

REACTIONS (9)
  - Death [Fatal]
  - Liver carcinoma ruptured [Unknown]
  - Abdominal pain [Unknown]
  - Ascites [Unknown]
  - Cholelithiasis [Unknown]
  - Anaemia [Unknown]
  - Acute kidney injury [Unknown]
  - Nausea [Unknown]
  - Vomiting [Unknown]

NARRATIVE: CASE EVENT DATE: 20240505
